FAERS Safety Report 9731506 (Version 2)
Quarter: 2013Q1

REPORT INFORMATION
  Report Type: Spontaneous
  Country: US (occurrence: None)
  Receive Date: 20120711
  Receipt Date: 20121220
  Transmission Date: 20140127
  Serious: Yes (Other)
  Sender: FDA-Public Use
  Company Number: 2012-344

PATIENT
  Age: 53 Year
  Sex: Female

DRUGS (2)
  1. PRIALT (ZICONOTIDE) INTRATHECAL INFUSION [Suspect]
     Indication: MUSCLE SPASTICITY
     Route: 037
     Dates: end: 20120626
  2. BACLOFEN (BACLOFEN) INJECTION [Suspect]
     Route: 037

REACTIONS (4)
  - Muscle spasticity [None]
  - Nervous system disorder [None]
  - Dysphagia [None]
  - Diplopia [None]
